FAERS Safety Report 9948372 (Version 1)
Quarter: 2014Q1

REPORT INFORMATION
  Report Type: Spontaneous
  Country: US (occurrence: None)
  Receive Date: 20140122
  Receipt Date: 20140122
  Transmission Date: 20141002
  Serious: Yes (Other)
  Sender: FDA-Public Use
  Company Number: PHEH2013US020185

PATIENT
  Age: 19 Year
  Sex: Female
  Weight: 49 kg

DRUGS (9)
  1. TOBI PODHALER [Suspect]
     Indication: CYSTIC FIBROSIS
     Route: 055
     Dates: start: 20130701, end: 20130801
  2. TOBI PODHALER [Suspect]
     Indication: PSEUDOMONAS INFECTION
     Route: 055
     Dates: start: 20130701, end: 20130801
  3. LANSOPRAZOLE (LANSOPRAZOLE) [Concomitant]
  4. CREON (PANCREATIN) [Concomitant]
  5. DORNASE ALFA (DORNASE ALFA) [Concomitant]
  6. ZOFRAN (ONDANSETRON HYDROCHLORIDE) [Concomitant]
  7. TRAMADOL (TRAMADOL) [Concomitant]
  8. VITAMINS /90003601/ [Concomitant]
  9. HYPERTONIC SALINE SOLUTION (SODIUM CHLORIDE) [Concomitant]

REACTIONS (4)
  - Cough [None]
  - Drug intolerance [None]
  - Pulmonary function test decreased [None]
  - No therapeutic response [None]
